FAERS Safety Report 14804922 (Version 1)
Quarter: 2018Q2

REPORT INFORMATION
  Report Type: Spontaneous
  Country: US (occurrence: US)
  Receive Date: 20180416
  Receipt Date: 20180416
  Transmission Date: 20180711
  Serious: Yes (Hospitalization)
  Sender: FDA-Public Use
  Company Number: None

PATIENT
  Age: 58 Year
  Sex: Female

DRUGS (19)
  1. SANDIMMUNE [Suspect]
     Active Substance: CYCLOSPORINE
     Indication: RENAL TRANSPLANT
     Route: 048
     Dates: start: 20140207
  2. DIOVAN [Suspect]
     Active Substance: VALSARTAN
  3. AVELOX [Concomitant]
     Active Substance: MOXIFLOXACIN HYDROCHLORIDE
  4. MOMETASONE [Concomitant]
     Active Substance: MOMETASONE
  5. CEPHALEXIN. [Concomitant]
     Active Substance: CEPHALEXIN
  6. ALENDRONATE [Concomitant]
     Active Substance: ALENDRONATE SODIUM
  7. SANDIMMUNE [Suspect]
     Active Substance: CYCLOSPORINE
     Indication: RENAL TRANSPLANT
     Route: 048
     Dates: start: 20140207
  8. FUROSEMIDE. [Concomitant]
     Active Substance: FUROSEMIDE
  9. DESONDE [Concomitant]
  10. DIOVAN [Concomitant]
     Active Substance: VALSARTAN
  11. AMLODIPINE [Concomitant]
     Active Substance: AMLODIPINE BESYLATE
  12. CEFPODOXIME [Concomitant]
     Active Substance: CEFPODOXIME
  13. FLUTICASONE. [Concomitant]
     Active Substance: FLUTICASONE
  14. METOPROL SUC [Concomitant]
  15. CELLCEPT [Concomitant]
     Active Substance: MYCOPHENOLATE MOFETIL\MYCOPHENOLATE MOFETIL HYDROCHLORIDE
  16. CHERATUSSIN [Concomitant]
     Active Substance: AMMONIUM CHLORIDE\DEXTROMETHORPHAN\SODIUM CITRATE
  17. AMOXICILLIN. [Concomitant]
     Active Substance: AMOXICILLIN
  18. PREDNISONE. [Concomitant]
     Active Substance: PREDNISONE
  19. NEO/POLY/HC [Concomitant]

REACTIONS (1)
  - Cellulitis [None]

NARRATIVE: CASE EVENT DATE: 201803
